FAERS Safety Report 22957092 (Version 2)
Quarter: 2023Q4

REPORT INFORMATION
  Report Type: Spontaneous
  Country: BR (occurrence: BR)
  Receive Date: 20230919
  Receipt Date: 20231011
  Transmission Date: 20240110
  Serious: No
  Sender: FDA-Public Use
  Company Number: BR-BAYER-2023A129482

PATIENT
  Age: 83 Year
  Sex: Female

DRUGS (3)
  1. XARELTO [Suspect]
     Active Substance: RIVAROXABAN
     Indication: Angina pectoris
     Dosage: 20 MG
     Route: 048
  2. XARELTO [Suspect]
     Active Substance: RIVAROXABAN
     Indication: Spinal cord compression
  3. XARELTO [Suspect]
     Active Substance: RIVAROXABAN
     Indication: Blood pressure measurement

REACTIONS (1)
  - Off label use [Unknown]
